FAERS Safety Report 8183291-3 (Version None)
Quarter: 2012Q1

REPORT INFORMATION
  Report Type: 
  Country: None (occurrence: None)
  Receive Date: 20120305
  Receipt Date: 20120223
  Transmission Date: 20120608
  Serious: Yes (Hospitalization)
  Sender: FDA-Public Use
  Company Number: JP-AMGEN-JPNCT2012013728

PATIENT
  Age: 69 Year
  Sex: Male
  Weight: 44 kg

DRUGS (15)
  1. MINOCYCLINE HCL [Concomitant]
     Dosage: UNK
     Route: 048
  2. PANITUMUMAB [Suspect]
     Dosage: 4.8 MG/KG, Q2WK
     Route: 041
     Dates: start: 20110324, end: 20110324
  3. PANITUMUMAB [Suspect]
     Dosage: 6 MG/KG, Q2WK
     Route: 041
     Dates: start: 20110901, end: 20110901
  4. CORTICOSTEROIDS [Concomitant]
     Indication: PROPHYLAXIS
     Dosage: UNK
     Route: 065
  5. PREDNISOLONE [Concomitant]
     Dosage: UNK
     Route: 048
  6. ALLEGRA [Concomitant]
     Dosage: UNK
     Route: 048
  7. PANITUMUMAB [Suspect]
     Dosage: 4.8 MG/KG, Q2WK
     Route: 041
     Dates: start: 20110630, end: 20110630
  8. PANITUMUMAB [Suspect]
     Dosage: 6 MG/KG, Q2WK
     Route: 041
     Dates: start: 20110728, end: 20110728
  9. ANTIHISTAMINES [Concomitant]
     Indication: PROPHYLAXIS
     Dosage: UNK
     Route: 065
  10. PANITUMUMAB [Suspect]
     Dosage: 4.8 MG/KG, Q2WK
     Route: 041
     Dates: start: 20110421, end: 20110602
  11. PANITUMUMAB [Suspect]
     Dosage: 6 MG/KG, Q2WK
     Route: 041
     Dates: start: 20110929, end: 20120202
  12. HIRUDOID [Concomitant]
     Dosage: UNK
     Route: 062
  13. PANITUMUMAB [Suspect]
     Indication: COLORECTAL CANCER
     Dosage: 6 MG/KG, Q2WK
     Route: 041
     Dates: start: 20101104, end: 20101216
  14. LOCOID [Concomitant]
     Dosage: UNK
     Route: 062
  15. MYSER [Concomitant]
     Dosage: UNK
     Route: 062

REACTIONS (4)
  - HYPOMAGNESAEMIA [None]
  - POST PROCEDURAL HAEMORRHAGE [None]
  - MALAISE [None]
  - DERMATITIS ACNEIFORM [None]
